FAERS Safety Report 4365547-5 (Version None)
Quarter: 2004Q2

REPORT INFORMATION
  Report Type: 
  Country: None (occurrence: None)
  Receive Date: 20040526
  Receipt Date: 20040521
  Transmission Date: 20050107
  Serious: Yes (Other)
  Sender: FDA-Public Use
  Company Number: GB-GLAXOSMITHKLINE-B0333564A

PATIENT
  Age: 73 Year
  Sex: Female
  Weight: 54 kg

DRUGS (4)
  1. SERETIDE [Suspect]
     Indication: CHRONIC OBSTRUCTIVE AIRWAYS DISEASE
     Dosage: 250MCG PER DAY
     Dates: start: 20040317
  2. COMBIVENT [Concomitant]
     Indication: CHRONIC OBSTRUCTIVE AIRWAYS DISEASE
     Dosage: 2PUFF FOUR TIMES PER DAY
     Dates: start: 19981224
  3. SALMETEROL [Concomitant]
     Indication: CHRONIC OBSTRUCTIVE AIRWAYS DISEASE
     Dosage: 2PUFF TWICE PER DAY
     Dates: start: 20010104
  4. PRAVASTATIN [Concomitant]
     Indication: PERIPHERAL VASCULAR DISORDER
     Dosage: 40MG PER DAY
     Route: 048
     Dates: start: 20020805

REACTIONS (1)
  - ARTHRITIS [None]
